FAERS Safety Report 16964244 (Version 1)
Quarter: 2019Q4

REPORT INFORMATION
  Report Type: Spontaneous
  Country: US (occurrence: US)
  Receive Date: 20191025
  Receipt Date: 20191025
  Transmission Date: 20200122
  Serious: Yes (Other)
  Sender: FDA-Public Use
  Company Number: None

PATIENT
  Age: 40 Year
  Sex: Male

DRUGS (1)
  1. RITUXIMAB. [Suspect]
     Active Substance: RITUXIMAB
     Dosage: 785 MG INTRAVENOUS PER SCHEDULE?
     Route: 042
     Dates: start: 20191016, end: 20191016

REACTIONS (1)
  - Chills [None]

NARRATIVE: CASE EVENT DATE: 20191016
